FAERS Safety Report 6364650-8 (Version None)
Quarter: 2009Q3

REPORT INFORMATION
  Report Type: 
  Country: None (occurrence: None)
  Receive Date: 20090919
  Receipt Date: 20090727
  Transmission Date: 20100115
  Serious: No
  Sender: FDA-Public Use
  Company Number: US-ABBOTT-09P-163-0588057-00

PATIENT
  Sex: Female
  Weight: 63.56 kg

DRUGS (6)
  1. HUMIRA [Suspect]
     Indication: RHEUMATOID ARTHRITIS
     Route: 058
     Dates: start: 20060101
  2. MICROGESTIN 1.5/30 [Concomitant]
     Indication: CONTRACEPTION
  3. M.V.I. [Concomitant]
     Indication: DRUG USE FOR UNKNOWN INDICATION
  4. CALCIUM [Concomitant]
     Indication: DRUG USE FOR UNKNOWN INDICATION
  5. B-VIT [Concomitant]
     Indication: DRUG USE FOR UNKNOWN INDICATION
  6. LORATADINE [Concomitant]
     Indication: SEASONAL ALLERGY
     Dosage: AS REQUIRED

REACTIONS (1)
  - DRUG DOSE OMISSION [None]
